FAERS Safety Report 16373702 (Version 2)
Quarter: 2019Q3

REPORT INFORMATION
  Report Type: Spontaneous
  Country: US (occurrence: US)
  Receive Date: 20190530
  Receipt Date: 20190709
  Transmission Date: 20191004
  Serious: No
  Sender: FDA-Public Use
  Company Number: US-SA-2019SA146595

PATIENT
  Sex: Male

DRUGS (5)
  1. MUPIROCIN. [Concomitant]
     Active Substance: MUPIROCIN
  2. CLOBETASOL [Concomitant]
     Active Substance: CLOBETASOL
  3. ZYRTEC [Concomitant]
     Active Substance: CETIRIZINE HYDROCHLORIDE
  4. DUPIXENT [Suspect]
     Active Substance: DUPILUMAB
     Indication: DERMATITIS ATOPIC
     Dosage: 300 MG, QOW
  5. BENZEDREX [PROPYLHEXEDRINE] [Concomitant]

REACTIONS (2)
  - Therapeutic response unexpected [Unknown]
  - Dermatitis atopic [Unknown]
